FAERS Safety Report 15534086 (Version 1)
Quarter: 2018Q4

REPORT INFORMATION
  Report Type: Report from Study
  Country: US (occurrence: US)
  Receive Date: 20181019
  Receipt Date: 20181019
  Transmission Date: 20190205
  Serious: Yes (Other)
  Sender: FDA-Public Use
  Company Number: US-SA-2018SA285264

PATIENT
  Age: 71 Year
  Sex: Female

DRUGS (1)
  1. INSULIN GLARGINE [Suspect]
     Active Substance: INSULIN GLARGINE
     Indication: TYPE 2 DIABETES MELLITUS
     Dosage: 68 U, HS
     Route: 058
     Dates: start: 2007

REACTIONS (2)
  - Intraductal proliferative breast lesion [Recovered/Resolved]
  - Radiation injury [Not Recovered/Not Resolved]

NARRATIVE: CASE EVENT DATE: 201301
